FAERS Safety Report 9493182 (Version 1)
Quarter: 2013Q3

REPORT INFORMATION
  Report Type: Spontaneous
  Country: FR (occurrence: FR)
  Receive Date: 20130902
  Receipt Date: 20130902
  Transmission Date: 20140515
  Serious: Yes (Hospitalization)
  Sender: FDA-Public Use
  Company Number: FR-BRISTOL-MYERS SQUIBB COMPANY-19222843

PATIENT
  Age: 76 Year
  Sex: Female

DRUGS (18)
  1. BYETTA [Suspect]
     Indication: TYPE 2 DIABETES MELLITUS
     Route: 058
     Dates: end: 20130608
  2. METFORMIN HCL [Suspect]
     Indication: TYPE 2 DIABETES MELLITUS
     Dosage: INTRPD:08JUN13 AND REINTRODUCED
     Route: 048
  3. DIAMICRON [Suspect]
     Indication: TYPE 2 DIABETES MELLITUS
     Route: 048
     Dates: end: 20130608
  4. LEVEMIR [Suspect]
     Indication: TYPE 2 DIABETES MELLITUS
     Route: 058
  5. APIDRA [Suspect]
     Indication: TYPE 2 DIABETES MELLITUS
     Route: 058
  6. TAHOR [Concomitant]
  7. COAPROVEL [Concomitant]
     Dosage: 1DF:300MG+25MG
  8. PANTOPRAZOLE [Concomitant]
  9. DOLIPRANE [Concomitant]
  10. SULFARLEM [Concomitant]
  11. DITROPAN [Concomitant]
  12. LORAZEPAM [Concomitant]
  13. AERIUS [Concomitant]
  14. BIPERIDYS [Concomitant]
  15. PAROXETINE [Concomitant]
  16. TARDYFERON [Concomitant]
  17. LOVENOX [Concomitant]
  18. DUROGESIC [Concomitant]

REACTIONS (3)
  - Hypoglycaemia [Recovered/Resolved]
  - Malaise [Recovered/Resolved]
  - Disturbance in attention [Recovered/Resolved]
